FAERS Safety Report 5609590-4 (Version None)
Quarter: 2008Q1

REPORT INFORMATION
  Report Type: 
  Country: None (occurrence: None)
  Receive Date: 20080131
  Receipt Date: 20080125
  Transmission Date: 20080703
  Serious: Yes (Life-Threatening, Hospitalization, Disabling, Other)
  Sender: FDA-Public Use
  Company Number: A0695169A

PATIENT
  Sex: Male

DRUGS (1)
  1. ABACAVIR [Suspect]
     Indication: HIV INFECTION
     Route: 048

REACTIONS (7)
  - ABDOMINAL PAIN [None]
  - CHEST PAIN [None]
  - DIARRHOEA [None]
  - MYCOBACTERIUM AVIUM COMPLEX INFECTION [None]
  - NAUSEA [None]
  - PYREXIA [None]
  - VOMITING [None]
